FAERS Safety Report 7395236-4 (Version None)
Quarter: 2011Q2

REPORT INFORMATION
  Report Type: 
  Country: None (occurrence: None)
  Receive Date: 20110405
  Receipt Date: 20110302
  Transmission Date: 20111010
  Serious: Yes (Hospitalization)
  Sender: FDA-Public Use
  Company Number: US-ASTRAZENECA-2011SE18616

PATIENT
  Age: 77 Year
  Sex: Female

DRUGS (2)
  1. XYLOCAINE [Suspect]
     Indication: PAIN
     Route: 014
  2. DEPO-MEDROL [Suspect]
     Indication: ARTHRALGIA
     Route: 065

REACTIONS (1)
  - STREPTOCOCCAL INFECTION [None]
